FAERS Safety Report 10238772 (Version 1)
Quarter: 2014Q1

REPORT INFORMATION
  Report Type: Spontaneous
  Country: US (occurrence: None)
  Receive Date: 20140306
  Receipt Date: 20140306
  Transmission Date: 20141002
  Serious: Yes (Life-Threatening, Hospitalization, Other)
  Sender: FDA-Public Use
  Company Number: 163-21880-13080905

PATIENT
  Age: 76 Year
  Sex: Male

DRUGS (2)
  1. REVLIMID [Suspect]
     Indication: MONOCLONAL GAMMOPATHY
     Route: 048
     Dates: start: 20130212, end: 201306
  2. COUMADIN (WARFARIN SODIUM) [Concomitant]

REACTIONS (1)
  - Intestinal haemorrhage [None]
